FAERS Safety Report 6355225-5 (Version None)
Quarter: 2009Q3

REPORT INFORMATION
  Report Type: 
  Country: None (occurrence: None)
  Receive Date: 20090914
  Receipt Date: 20090901
  Transmission Date: 20100115
  Serious: Yes (Other)
  Sender: FDA-Public Use
  Company Number: ES-MYLANLABS-2009S1015521

PATIENT
  Age: 57 Year
  Sex: Male

DRUGS (13)
  1. TENOFOVIR [Suspect]
     Indication: HIV INFECTION
  2. EMTRICITABINE [Suspect]
     Indication: HIV INFECTION
  3. RITONAVIR [Suspect]
     Indication: HIV INFECTION
  4. ZIDOVUDINE [Suspect]
     Indication: HIV INFECTION
  5. DIDANOSINE [Suspect]
     Indication: HIV INFECTION
  6. LAMIVUDINE [Suspect]
     Indication: HIV INFECTION
  7. STAVUDINE [Suspect]
     Indication: HIV INFECTION
  8. NEVIRAPINE [Suspect]
     Indication: HIV INFECTION
  9. EFAVIRENZ [Suspect]
     Indication: HIV INFECTION
  10. LOPINAVIR [Suspect]
     Indication: HIV INFECTION
  11. NELFINAVIR [Suspect]
     Indication: HIV INFECTION
  12. INDINIVIR SULFATE [Suspect]
     Indication: HIV INFECTION
  13. SAQUINAVIR [Suspect]
     Indication: HIV INFECTION

REACTIONS (1)
  - PORTAL HYPERTENSION [None]
